FAERS Safety Report 7261827-4 (Version None)
Quarter: 2011Q1

REPORT INFORMATION
  Report Type: 
  Country: None (occurrence: None)
  Receive Date: 20110120
  Receipt Date: 20110104
  Transmission Date: 20110831
  Serious: Yes (Other)
  Sender: FDA-Public Use
  Company Number: 2011000060

PATIENT
  Age: 83 Year
  Sex: Female
  Weight: 58.9676 kg

DRUGS (6)
  1. ASPIRIN [Concomitant]
  2. TOPROL-XL [Concomitant]
  3. SYNTHROID [Concomitant]
  4. BENICAR [Concomitant]
  5. CHOLESTEROL MED [Concomitant]
  6. TARCEVA [Suspect]
     Indication: NON-SMALL CELL LUNG CANCER
     Dosage: 150 MG, QD, ORAL
     Route: 048
     Dates: start: 20101201, end: 20101221

REACTIONS (5)
  - HYPOTENSION [None]
  - EYE SWELLING [None]
  - VOMITING [None]
  - RASH GENERALISED [None]
  - DIARRHOEA [None]
